FAERS Safety Report 6291303-7 (Version None)
Quarter: 2009Q3

REPORT INFORMATION
  Report Type: 
  Country: None (occurrence: None)
  Receive Date: 20090730
  Receipt Date: 20090713
  Transmission Date: 20100115
  Serious: Yes (Other)
  Sender: FDA-Public Use
  Company Number: JP-MERCK-0907USA01926

PATIENT
  Age: 66 Year
  Sex: Female

DRUGS (3)
  1. SINGULAIR [Suspect]
     Indication: ASTHMA
     Route: 048
  2. SOLU-MEDROL [Suspect]
     Indication: ASTHMA
     Route: 042
     Dates: start: 20090703, end: 20090705
  3. PREDNISOLONE [Suspect]
     Indication: ASTHMA
     Route: 048
     Dates: start: 20090706, end: 20090713

REACTIONS (1)
  - ALLERGIC GRANULOMATOUS ANGIITIS [None]
